FAERS Safety Report 11889407 (Version 5)
Quarter: 2016Q1

REPORT INFORMATION
  Report Type: Report from Study
  Country: CA (occurrence: CA)
  Receive Date: 20160105
  Receipt Date: 20160324
  Transmission Date: 20160526
  Serious: Yes (Hospitalization, Other)
  Sender: FDA-Public Use
  Company Number: CA-ROCHE-1687291

PATIENT
  Age: 81 Year
  Sex: Male
  Weight: 85.8 kg

DRUGS (104)
  1. OBINUTUZUMAB [Suspect]
     Active Substance: OBINUTUZUMAB
     Dosage: C1D8
     Route: 042
     Dates: start: 20141008, end: 20141008
  2. NEXIUM [Concomitant]
     Active Substance: ESOMEPRAZOLE MAGNESIUM
     Indication: GASTROOESOPHAGEAL REFLUX DISEASE
     Route: 048
     Dates: start: 2000
  3. OLMETEC PLUS [Concomitant]
     Active Substance: HYDROCHLOROTHIAZIDE\OLMESARTAN MEDOXOMIL
     Indication: HYPERTENSION
     Dosage: COMBO PILL - DOSE 20/12.5MG
     Route: 048
     Dates: start: 2000
  4. PLATELETS [Concomitant]
     Active Substance: HUMAN PLATELET, ALLOGENIC
     Dosage: 1 UNIT
     Route: 041
     Dates: start: 20150204, end: 20150204
  5. PLATELETS [Concomitant]
     Active Substance: HUMAN PLATELET, ALLOGENIC
     Dosage: 1 UNIT
     Route: 042
     Dates: start: 20150401, end: 20150401
  6. PLATELETS [Concomitant]
     Active Substance: HUMAN PLATELET, ALLOGENIC
     Dosage: 1 UNIT
     Route: 042
     Dates: start: 20150512, end: 20150512
  7. AZITHROMYCIN ANHYDROUS. [Concomitant]
     Active Substance: AZITHROMYCIN ANHYDROUS
     Route: 048
     Dates: start: 20150112, end: 20150112
  8. AMOXICLAV [Concomitant]
     Active Substance: AMOXICILLIN\CLAVULANIC ACID
     Route: 048
     Dates: start: 20150114, end: 20150123
  9. PRBC [Concomitant]
     Dosage: 2 UNITS CONTINUOUS
     Route: 041
     Dates: start: 20141018, end: 20141018
  10. PRBC [Concomitant]
     Dosage: 2 UNITS
     Route: 041
     Dates: start: 20141212, end: 20141212
  11. PRBC [Concomitant]
     Dosage: 2 UNITS
     Route: 042
     Dates: start: 20150609, end: 20150609
  12. PRBC [Concomitant]
     Dosage: 2 UNITS
     Route: 042
     Dates: start: 20150721, end: 20150721
  13. PRBC [Concomitant]
     Route: 042
     Dates: start: 20150910, end: 20150910
  14. PRBC [Concomitant]
     Route: 042
     Dates: start: 20151001, end: 20151001
  15. PRBC [Concomitant]
     Route: 042
     Dates: start: 20151007, end: 20151007
  16. PRBC [Concomitant]
     Route: 042
     Dates: start: 20151015, end: 20151015
  17. PRBC [Concomitant]
     Route: 042
     Dates: start: 20151215, end: 20151215
  18. OBINUTUZUMAB [Suspect]
     Active Substance: OBINUTUZUMAB
     Dosage: C1D2
     Route: 042
     Dates: start: 20141002, end: 20141002
  19. OBINUTUZUMAB [Suspect]
     Active Substance: OBINUTUZUMAB
     Dosage: C5D1
     Route: 042
     Dates: start: 20150128, end: 20150128
  20. RANITIDINE [Concomitant]
     Active Substance: RANITIDINE\RANITIDINE HYDROCHLORIDE
     Indication: PROPHYLAXIS
     Route: 048
     Dates: start: 20140928, end: 20141002
  21. TYLENOL [Concomitant]
     Active Substance: ACETAMINOPHEN
     Route: 048
     Dates: start: 20141007, end: 20141007
  22. BENADRYL [Concomitant]
     Active Substance: DIPHENHYDRAMINE HYDROCHLORIDE
     Route: 042
     Dates: start: 20141001, end: 20141001
  23. NORMAL SALINE [Concomitant]
     Active Substance: SODIUM CHLORIDE
     Dosage: DOSE 500 CC
     Route: 042
     Dates: start: 20141203, end: 20141204
  24. PLATELETS [Concomitant]
     Active Substance: HUMAN PLATELET, ALLOGENIC
     Dosage: 1 UNIT
     Route: 041
     Dates: start: 20150212, end: 20150212
  25. PLATELETS [Concomitant]
     Active Substance: HUMAN PLATELET, ALLOGENIC
     Dosage: 1 UNIT
     Route: 041
     Dates: start: 20150313, end: 20150313
  26. PLATELETS [Concomitant]
     Active Substance: HUMAN PLATELET, ALLOGENIC
     Route: 042
     Dates: start: 20151227, end: 20151227
  27. PICATO [Concomitant]
     Active Substance: INGENOL MEBUTATE
     Indication: BASAL CELL CARCINOMA
     Dosage: UNIT DOSE: 2 APPLICATIONS
     Route: 061
     Dates: start: 201504, end: 201504
  28. PRBC [Concomitant]
     Dosage: 2 UNITS
     Route: 042
     Dates: start: 20150512, end: 20150512
  29. PRBC [Concomitant]
     Route: 042
     Dates: start: 20150721, end: 20150721
  30. PRBC [Concomitant]
     Route: 042
     Dates: start: 20150923, end: 20150923
  31. PRBC [Concomitant]
     Route: 042
     Dates: start: 20151119, end: 20151119
  32. IVIG [Concomitant]
     Active Substance: HUMAN IMMUNOGLOBULIN G
     Route: 042
     Dates: start: 20150928
  33. SEPTRA DS [Concomitant]
     Active Substance: SULFAMETHOXAZOLE\TRIMETHOPRIM
     Indication: PROPHYLAXIS
     Dosage: ADMINISTERED MONDAY, WEDNESDAY AND FRIDAY.
     Route: 048
     Dates: start: 20140930
  34. PLATELETS [Concomitant]
     Active Substance: HUMAN PLATELET, ALLOGENIC
     Dosage: 1 UNIT
     Route: 042
     Dates: start: 20150525, end: 20150525
  35. PLATELETS [Concomitant]
     Active Substance: HUMAN PLATELET, ALLOGENIC
     Dosage: 1 UNIT
     Route: 042
     Dates: start: 20150616, end: 20150616
  36. PLATELETS [Concomitant]
     Active Substance: HUMAN PLATELET, ALLOGENIC
     Route: 042
     Dates: start: 20151201, end: 20151201
  37. PLATELETS [Concomitant]
     Active Substance: HUMAN PLATELET, ALLOGENIC
     Route: 042
     Dates: start: 20151221, end: 20151221
  38. PRBC [Concomitant]
     Indication: ANAEMIA
     Dosage: 2 UNITS
     Route: 042
     Dates: start: 20141007, end: 20141007
  39. PRBC [Concomitant]
     Dosage: 2 UNITS
     Route: 041
     Dates: start: 20150122, end: 20150122
  40. PRBC [Concomitant]
     Dosage: 2 UNITS
     Route: 041
     Dates: start: 20150325, end: 20150325
  41. PRBC [Concomitant]
     Dosage: 2 UNITS
     Route: 042
     Dates: start: 20150707, end: 20150707
  42. PRBC [Concomitant]
     Route: 042
     Dates: start: 20151104, end: 20151104
  43. PRBC [Concomitant]
     Route: 042
     Dates: start: 20151228, end: 20151228
  44. EXJADE [Concomitant]
     Active Substance: DEFERASIROX
     Indication: IRON OVERLOAD
     Route: 048
     Dates: start: 20151201, end: 20151227
  45. OBINUTUZUMAB [Suspect]
     Active Substance: OBINUTUZUMAB
     Dosage: C2D1?TEMPORARILY INTERRUPTED DUE TO AE NEUTROPENIA.
     Route: 042
     Dates: start: 20141105, end: 20141105
  46. OBINUTUZUMAB [Suspect]
     Active Substance: OBINUTUZUMAB
     Dosage: C3D1
     Route: 042
     Dates: start: 20141203, end: 20141203
  47. BENDAMUSTINE [Suspect]
     Active Substance: BENDAMUSTINE
     Dosage: ADMINISTERED ON DAY 1 AND DAY 2 OF EACH CYCLE.
     Route: 042
     Dates: start: 20141231, end: 20150226
  48. XALATAN [Concomitant]
     Active Substance: LATANOPROST
     Indication: EYE INJURY
     Dosage: IN RIGHT EYE
     Route: 047
     Dates: start: 1991
  49. CRESTOR [Concomitant]
     Active Substance: ROSUVASTATIN CALCIUM
     Indication: DYSLIPIDAEMIA
     Route: 048
     Dates: start: 2000
  50. CETIRIZINE [Concomitant]
     Active Substance: CETIRIZINE HYDROCHLORIDE
     Indication: PROPHYLAXIS
     Route: 048
     Dates: start: 20140928, end: 20141002
  51. BENADRYL [Concomitant]
     Active Substance: DIPHENHYDRAMINE HYDROCHLORIDE
     Indication: PROPHYLAXIS
     Dosage: 30 MINUTES BEFORE OBINUTUZUMAB.
     Route: 048
     Dates: start: 20141001, end: 20150225
  52. CIPROFLOXACIN. [Concomitant]
     Active Substance: CIPROFLOXACIN
     Route: 048
     Dates: start: 20141111, end: 20141117
  53. ACYCLOVIR. [Concomitant]
     Active Substance: ACYCLOVIR
     Indication: PROPHYLAXIS
     Route: 048
     Dates: start: 20140930
  54. PLATELETS [Concomitant]
     Active Substance: HUMAN PLATELET, ALLOGENIC
     Dosage: 1 UNIT
     Route: 042
     Dates: start: 20150507, end: 20150507
  55. PLATELETS [Concomitant]
     Active Substance: HUMAN PLATELET, ALLOGENIC
     Dosage: 1 UNIT
     Route: 042
     Dates: start: 20150520, end: 20150520
  56. PLATELETS [Concomitant]
     Active Substance: HUMAN PLATELET, ALLOGENIC
     Dosage: 1 UNIT
     Route: 042
     Dates: start: 20150609, end: 20150609
  57. PRBC [Concomitant]
     Dosage: 2 UNITS CONTINUOUS
     Route: 041
     Dates: start: 20141025, end: 20141025
  58. PRBC [Concomitant]
     Dosage: 2 UNITS
     Route: 041
     Dates: start: 20150313, end: 20150313
  59. FLOMAX [Concomitant]
     Active Substance: TAMSULOSIN HYDROCHLORIDE
     Route: 048
     Dates: start: 2015
  60. VITAMIN K [Concomitant]
     Active Substance: PHYTONADIONE
     Route: 048
     Dates: start: 20151227, end: 20151227
  61. LOPRESSOR [Concomitant]
     Active Substance: METOPROLOL TARTRATE
     Indication: HYPERTENSION
     Route: 048
     Dates: start: 2000
  62. METFORMIN [Concomitant]
     Active Substance: METFORMIN HYDROCHLORIDE
     Indication: TYPE 2 DIABETES MELLITUS
     Route: 048
     Dates: start: 2000
  63. FLU SHOT [Concomitant]
     Active Substance: INFLUENZA VIRUS VACCINE
     Indication: PROPHYLAXIS
     Dosage: DOSE 1 UNIT
     Route: 030
     Dates: start: 20141215, end: 20141215
  64. PLATELETS [Concomitant]
     Active Substance: HUMAN PLATELET, ALLOGENIC
     Dosage: 1 UNIT
     Route: 041
     Dates: start: 20150304, end: 20150304
  65. PLATELETS [Concomitant]
     Active Substance: HUMAN PLATELET, ALLOGENIC
     Dosage: 1 UNIT
     Route: 041
     Dates: start: 20150325, end: 20150325
  66. PLATELETS [Concomitant]
     Active Substance: HUMAN PLATELET, ALLOGENIC
     Route: 042
     Dates: start: 20160104, end: 20160104
  67. AZITHROMYCIN ANHYDROUS. [Concomitant]
     Active Substance: AZITHROMYCIN ANHYDROUS
     Route: 048
     Dates: start: 20150113, end: 20150114
  68. PRBC [Concomitant]
     Dosage: 2 UNITS
     Route: 041
     Dates: start: 20150204, end: 20150204
  69. PRBC [Concomitant]
     Dosage: 2 UNITS
     Route: 041
     Dates: start: 20150220, end: 20150220
  70. PRBC [Concomitant]
     Dosage: 2 UNITS
     Route: 042
     Dates: start: 20150425, end: 20150425
  71. PRBC [Concomitant]
     Route: 042
     Dates: start: 20150707, end: 20150707
  72. PRBC [Concomitant]
     Route: 042
     Dates: start: 20151028, end: 20151028
  73. BENDAMUSTINE [Suspect]
     Active Substance: BENDAMUSTINE
     Indication: CHRONIC LYMPHOCYTIC LEUKAEMIA
     Dosage: ADMINISTERED ON DAY 1 AND DAY 2 OF EACH CYCLE.
     Route: 042
     Dates: start: 20141001
  74. MURO 128 [Concomitant]
     Active Substance: SODIUM CHLORIDE
     Indication: EYE INJURY
     Route: 047
     Dates: start: 1991, end: 20150217
  75. DEXAMETHASONE. [Concomitant]
     Active Substance: DEXAMETHASONE
     Dosage: 30 MINUTES BEFORE BENDAMUSTINE.
     Route: 048
     Dates: start: 20141105, end: 20150228
  76. PLATELETS [Concomitant]
     Active Substance: HUMAN PLATELET, ALLOGENIC
     Dosage: DOSE 2 UNITS
     Route: 042
     Dates: start: 20150108, end: 20150108
  77. PLATELETS [Concomitant]
     Active Substance: HUMAN PLATELET, ALLOGENIC
     Dosage: 1 UNIT
     Route: 042
     Dates: start: 20150630, end: 20150630
  78. PRBC [Concomitant]
     Route: 042
     Dates: start: 20150819, end: 20150819
  79. PRBC [Concomitant]
     Route: 042
     Dates: start: 20151126, end: 20151126
  80. OBINUTUZUMAB [Suspect]
     Active Substance: OBINUTUZUMAB
     Dosage: C1D15
     Route: 042
     Dates: start: 20141015, end: 20141015
  81. FERROUS SULFATE [Concomitant]
     Active Substance: FERROUS SULFATE\FERROUS SULFATE, DRIED
     Indication: ANAEMIA
     Route: 048
     Dates: start: 2007, end: 20150107
  82. AVANDIA [Concomitant]
     Active Substance: ROSIGLITAZONE MALEATE
     Indication: TYPE 2 DIABETES MELLITUS
     Route: 048
     Dates: start: 2000
  83. MURO 128 [Concomitant]
     Active Substance: SODIUM CHLORIDE
     Route: 047
     Dates: start: 20150217
  84. ZOFRAN [Concomitant]
     Active Substance: ONDANSETRON HYDROCHLORIDE
     Indication: PROPHYLAXIS
     Dosage: 30 MINUTES BEFORE BENDAMUSTINE THEN EVERY 12 HOURS X 4 DOSES.
     Route: 048
     Dates: start: 20141001, end: 20150228
  85. PLATELETS [Concomitant]
     Active Substance: HUMAN PLATELET, ALLOGENIC
     Dosage: 1 UNIT
     Route: 042
     Dates: start: 20150428, end: 20150428
  86. PLATELETS [Concomitant]
     Active Substance: HUMAN PLATELET, ALLOGENIC
     Dosage: 1 UNIT
     Route: 042
     Dates: start: 20150623, end: 20150623
  87. TETANUS BOOSTER [Concomitant]
     Dosage: DOSE: 0.5CC/1M
     Route: 030
     Dates: start: 20150107, end: 20150107
  88. PRBC [Concomitant]
     Route: 042
     Dates: start: 20150928, end: 20150928
  89. PRBC [Concomitant]
     Route: 042
     Dates: start: 20151201, end: 20151201
  90. IMODIUM [Concomitant]
     Active Substance: LOPERAMIDE HYDROCHLORIDE
     Route: 048
     Dates: start: 201508, end: 201510
  91. OBINUTUZUMAB [Suspect]
     Active Substance: OBINUTUZUMAB
     Indication: CHRONIC LYMPHOCYTIC LEUKAEMIA
     Dosage: C1D1?TEMPORARILY INTERRUPTED DUE TO INFUSION RELATED REACTION.
     Route: 042
     Dates: start: 20141001, end: 20141001
  92. OBINUTUZUMAB [Suspect]
     Active Substance: OBINUTUZUMAB
     Dosage: C4D1
     Route: 042
     Dates: start: 20141231, end: 20141231
  93. OBINUTUZUMAB [Suspect]
     Active Substance: OBINUTUZUMAB
     Dosage: C6D1
     Route: 042
     Dates: start: 20150225, end: 20150225
  94. IMDUR [Concomitant]
     Active Substance: ISOSORBIDE MONONITRATE
     Indication: ANGINA PECTORIS
     Route: 048
     Dates: start: 2000
  95. ALLOPURINOL. [Concomitant]
     Active Substance: ALLOPURINOL
     Indication: PROPHYLAXIS
     Dosage: DAILY - HOLD ON BENDAMUSTINE DAYS.
     Route: 048
     Dates: start: 20140929, end: 20141005
  96. TYLENOL [Concomitant]
     Active Substance: ACETAMINOPHEN
     Indication: PROPHYLAXIS
     Dosage: 30 MINUTES BEFORE OBINUTUZUMAAB.
     Route: 048
     Dates: start: 20141001, end: 20150225
  97. DEXAMETHASONE. [Concomitant]
     Active Substance: DEXAMETHASONE
     Indication: PROPHYLAXIS
     Dosage: 1 HOUR BEFORE OBINUTUZUMAB
     Route: 042
     Dates: start: 20141001, end: 20141002
  98. NORMAL SALINE [Concomitant]
     Active Substance: SODIUM CHLORIDE
     Dosage: DOSE 500 CC
     Route: 042
     Dates: start: 20141008, end: 20141008
  99. NORMAL SALINE [Concomitant]
     Active Substance: SODIUM CHLORIDE
     Dosage: DOSE 500 CC
     Route: 042
     Dates: start: 20141015, end: 20141015
  100. PRBC [Concomitant]
     Dosage: 2 UNITS
     Route: 041
     Dates: start: 20141116, end: 20141116
  101. PRBC [Concomitant]
     Dosage: 2 UNITS
     Route: 042
     Dates: start: 20150623, end: 20150623
  102. PRBC [Concomitant]
     Route: 042
     Dates: start: 20150805, end: 20150805
  103. PRBC [Concomitant]
     Route: 042
     Dates: start: 20150902, end: 20150902
  104. PRBC [Concomitant]
     Route: 042
     Dates: start: 20151222, end: 20151222

REACTIONS (3)
  - Pneumonia [Recovered/Resolved]
  - Pulmonary oedema [Recovered/Resolved]
  - Myelodysplastic syndrome [Not Recovered/Not Resolved]

NARRATIVE: CASE EVENT DATE: 20151226
